FAERS Safety Report 8444300-7 (Version None)
Quarter: 2012Q2

REPORT INFORMATION
  Report Type: 
  Country: None (occurrence: None)
  Receive Date: 20120618
  Receipt Date: 20120612
  Transmission Date: 20120825
  Serious: No
  Sender: FDA-Public Use
  Company Number: US-PFIZER INC-2012142013

PATIENT
  Sex: Female
  Weight: 77.098 kg

DRUGS (7)
  1. MORPHINE [Concomitant]
     Indication: PAIN
     Dosage: 120 MG TWO TIMES A DAY AND 15 MG DAILY
  2. KEFLEX [Concomitant]
     Indication: INFECTION
     Dosage: 500 MG, 4X/DAY
  3. ADDERALL 5 [Concomitant]
     Indication: CHRONIC FATIGUE SYNDROME
     Dosage: 40 MG, DAILY
  4. EFFEXOR XR [Suspect]
     Dosage: 300 MG, DAILY
     Route: 048
  5. EFFEXOR XR [Suspect]
     Indication: DEPRESSION
     Dosage: UNK
     Route: 048
     Dates: start: 19990101
  6. NORCO [Concomitant]
     Indication: PAIN
     Dosage: 20/650 MG, 3X/DAY
  7. DOXEPIN [Concomitant]
     Indication: DEPRESSION
     Dosage: 100 MG, DAILY

REACTIONS (1)
  - SKIN DISORDER [None]
